FAERS Safety Report 19330913 (Version 1)
Quarter: 2021Q2

REPORT INFORMATION
  Report Type: Spontaneous
  Country: JP (occurrence: US)
  Receive Date: 20210528
  Receipt Date: 20210528
  Transmission Date: 20210717
  Serious: Yes (Other)
  Sender: FDA-Public Use
  Company Number: JP-TAKEDA-2021TUS034147

PATIENT
  Sex: Female

DRUGS (25)
  1. ADDERALL [Concomitant]
     Active Substance: AMPHETAMINE ASPARTATE\AMPHETAMINE SULFATE\DEXTROAMPHETAMINE SACCHARATE\DEXTROAMPHETAMINE SULFATE
  2. LEVOTHYROXINE. [Concomitant]
     Active Substance: LEVOTHYROXINE
  3. WELLBUTRIN [Concomitant]
     Active Substance: BUPROPION HYDROCHLORIDE
  4. ZOFRAN [Concomitant]
     Active Substance: ONDANSETRON HYDROCHLORIDE
  5. VITAMIN C [Concomitant]
     Active Substance: ASCORBIC ACID
  6. METHYLCOBALAMIN. [Concomitant]
     Active Substance: METHYLCOBALAMIN
  7. L?METHYLFOLATE [Concomitant]
     Active Substance: LEVOMEFOLIC ACID
  8. PHENERGAN [Concomitant]
     Active Substance: PROMETHAZINE HYDROCHLORIDE
  9. B?COMPLEX PLUS B?12 [Concomitant]
  10. VITAMIN D3 [Concomitant]
     Active Substance: CHOLECALCIFEROL
  11. PRAVASTATIN. [Concomitant]
     Active Substance: PRAVASTATIN
  12. PLAVIX [Concomitant]
     Active Substance: CLOPIDOGREL BISULFATE
  13. MOTEGRITY [Suspect]
     Active Substance: PRUCALOPRIDE SUCCINATE
     Indication: SJOGREN^S SYNDROME
     Dosage: 2 MILLIGRAM, FOR 2 DAYS
     Route: 065
     Dates: start: 2021
  14. METHENAMINE HIPPURATE. [Concomitant]
     Active Substance: METHENAMINE HIPPURATE
  15. METFORMIN [Concomitant]
     Active Substance: METFORMIN HYDROCHLORIDE
  16. CLONAZEPAM. [Concomitant]
     Active Substance: CLONAZEPAM
  17. FISH OIL [Concomitant]
     Active Substance: FISH OIL
  18. NORVASC [Concomitant]
     Active Substance: AMLODIPINE BESYLATE
  19. AMITIZA [Suspect]
     Active Substance: LUBIPROSTONE
     Indication: PRODUCT USED FOR UNKNOWN INDICATION
     Dosage: 24 MICROGRAM, BID
     Route: 065
  20. VALSARTAN. [Concomitant]
     Active Substance: VALSARTAN
  21. OMEPRAZOLE. [Concomitant]
     Active Substance: OMEPRAZOLE
  22. DOXYCYCLINE. [Concomitant]
     Active Substance: DOXYCYCLINE
  23. CALCIUM MAGNESIUM [CALCIUM;MAGNESIUM] [Concomitant]
  24. MOTILIUM [Concomitant]
     Active Substance: DOMPERIDONE
  25. SINGULAIR [Concomitant]
     Active Substance: MONTELUKAST SODIUM

REACTIONS (9)
  - Nausea [Unknown]
  - Gastrointestinal hypomotility [Unknown]
  - Sjogren^s syndrome [Unknown]
  - Intestinal obstruction [Unknown]
  - Vomiting [Unknown]
  - Cystitis [Unknown]
  - Therapeutic product effect incomplete [Unknown]
  - Defaecation urgency [Unknown]
  - Headache [Unknown]
